FAERS Safety Report 7709207-9 (Version None)
Quarter: 2011Q3

REPORT INFORMATION
  Report Type: 
  Country: None (occurrence: None)
  Receive Date: 20110825
  Receipt Date: 20110819
  Transmission Date: 20111222
  Serious: Yes (Other)
  Sender: FDA-Public Use
  Company Number: PHHY2011US65144

PATIENT
  Sex: Male

DRUGS (2)
  1. EXELON [Suspect]
     Dosage: 9.5 MG, 1 PATCH DAILY
     Route: 062
  2. GEODON [Concomitant]

REACTIONS (1)
  - DEMENTIA WITH LEWY BODIES [None]
